FAERS Safety Report 25829455 (Version 1)
Quarter: 2025Q3

REPORT INFORMATION
  Report Type: Report from Study
  Country: US (occurrence: US)
  Receive Date: 20250922
  Receipt Date: 20250922
  Transmission Date: 20251021
  Serious: Yes (Hospitalization)
  Sender: SUNOVION
  Company Number: US-SMPA-2025SPA012055

PATIENT
  Age: 79 Year
  Sex: Male

DRUGS (11)
  1. ORGOVYX [Suspect]
     Active Substance: RELUGOLIX
     Indication: Prostate cancer
     Route: 048
  2. ORGOVYX [Suspect]
     Active Substance: RELUGOLIX
     Route: 048
  3. AMBIEN [Concomitant]
     Active Substance: ZOLPIDEM TARTRATE
  4. COZAAR [Concomitant]
     Active Substance: LOSARTAN POTASSIUM
  5. CYMBALTA [Concomitant]
     Active Substance: DULOXETINE HYDROCHLORIDE
  6. ELIQUIS [Concomitant]
     Active Substance: APIXABAN
  7. HYDROCHLOROTHIAZIDE [Concomitant]
     Active Substance: HYDROCHLOROTHIAZIDE
  8. LYRICA [Concomitant]
     Active Substance: PREGABALIN
  9. NORVASC [Concomitant]
     Active Substance: AMLODIPINE BESYLATE
  10. PRAVASTATIN [Concomitant]
     Active Substance: PRAVASTATIN
  11. TYLENOL [Concomitant]
     Active Substance: ACETAMINOPHEN

REACTIONS (1)
  - Fall [Unknown]
